FAERS Safety Report 7579539-6 (Version None)
Quarter: 2011Q2

REPORT INFORMATION
  Report Type: 
  Country: None (occurrence: None)
  Receive Date: 20110629
  Receipt Date: 20110622
  Transmission Date: 20111010
  Serious: Yes (Life-Threatening, Hospitalization)
  Sender: FDA-Public Use
  Company Number: FR-JNJFOC-20110610951

PATIENT
  Age: 20 Year
  Sex: Male

DRUGS (10)
  1. BLEOMYCIN SULFATE [Suspect]
     Indication: HODGKIN'S DISEASE NODULAR SCLEROSIS STAGE UNSPECIFIED
     Route: 042
     Dates: start: 20100616, end: 20101103
  2. BLEOMYCIN SULFATE [Suspect]
     Route: 042
  3. VINBLASTINE SULFATE [Suspect]
     Route: 042
  4. DOXORUBICIN HCL [Suspect]
     Indication: HODGKIN'S DISEASE NODULAR SCLEROSIS STAGE UNSPECIFIED
     Route: 042
  5. NEULASTA [Suspect]
     Route: 058
     Dates: start: 20100616, end: 20101103
  6. VINBLASTINE SULFATE [Suspect]
     Indication: HODGKIN'S DISEASE NODULAR SCLEROSIS STAGE UNSPECIFIED
     Route: 042
     Dates: start: 20100616, end: 20101103
  7. DOXORUBICIN HCL [Suspect]
     Route: 042
     Dates: start: 20100616, end: 20101103
  8. DACARBAZINE [Suspect]
     Route: 042
     Dates: start: 20100616, end: 20101103
  9. NEULASTA [Suspect]
     Indication: HODGKIN'S DISEASE NODULAR SCLEROSIS STAGE UNSPECIFIED
     Route: 058
  10. DACARBAZINE [Suspect]
     Indication: HODGKIN'S DISEASE NODULAR SCLEROSIS STAGE UNSPECIFIED
     Route: 042

REACTIONS (2)
  - INTERSTITIAL LUNG DISEASE [None]
  - PNEUMOTHORAX [None]
